FAERS Safety Report 25381087 (Version 2)
Quarter: 2025Q3

REPORT INFORMATION
  Report Type: Spontaneous
  Country: JP (occurrence: JP)
  Receive Date: 20250530
  Receipt Date: 20250701
  Transmission Date: 20251020
  Serious: Yes (Hospitalization)
  Sender: ELI LILLY AND COMPANY
  Company Number: JP-ELI_LILLY_AND_COMPANY-JP202505022214

PATIENT
  Age: 75 Year
  Sex: Female

DRUGS (2)
  1. VERZENIO [Suspect]
     Active Substance: ABEMACICLIB
     Indication: Breast cancer
     Dosage: 150 MG, BID
     Route: 048
     Dates: start: 202504, end: 202505
  2. FEMARA [Concomitant]
     Active Substance: LETROZOLE
     Indication: Breast cancer
     Dates: start: 202504, end: 202505

REACTIONS (4)
  - Fall [Unknown]
  - Femur fracture [Recovered/Resolved]
  - Sternal fracture [Recovered/Resolved]
  - Humerus fracture [Recovered/Resolved]
